FAERS Safety Report 4799791-X (Version None)
Quarter: 2005Q4

REPORT INFORMATION
  Report Type: 
  Country: None (occurrence: None)
  Receive Date: 20051012
  Receipt Date: 20051012
  Transmission Date: 20060501
  Serious: Yes (Death)
  Sender: FDA-Public Use
  Company Number: None

PATIENT
  Age: 75 Year
  Sex: Male
  Weight: 72.5755 kg

DRUGS (1)
  1. QUADRAMET [Suspect]
     Indication: PROSTATE CANCER METASTATIC
     Dates: start: 20050511, end: 20050511

REACTIONS (4)
  - BONE MARROW FAILURE [None]
  - PLATELET COUNT DECREASED [None]
  - PNEUMONIA [None]
  - RASH ERYTHEMATOUS [None]
